FAERS Safety Report 7732318-9 (Version None)
Quarter: 2011Q3

REPORT INFORMATION
  Report Type: 
  Country: None (occurrence: None)
  Receive Date: 20110906
  Receipt Date: 20110822
  Transmission Date: 20111222
  Serious: Yes (Hospitalization)
  Sender: FDA-Public Use
  Company Number: US-ARROW GEN-2011-13877

PATIENT
  Age: 43 Year
  Sex: Male

DRUGS (2)
  1. TERBINAFINE HCL [Suspect]
     Indication: NAIL INFECTION
     Dosage: UNKNOWN
     Route: 065
  2. RISPERDAL CONSTA [Suspect]
     Indication: SCHIZOAFFECTIVE DISORDER
     Dosage: 37.5 MG, UNKNOWN
     Route: 050

REACTIONS (5)
  - HALLUCINATION, AUDITORY [None]
  - EXTRAPYRAMIDAL DISORDER [None]
  - PERSECUTORY DELUSION [None]
  - PSYCHOTIC BEHAVIOUR [None]
  - DRUG INTERACTION [None]
